FAERS Safety Report 10637977 (Version 4)
Quarter: 2016Q1

REPORT INFORMATION
  Report Type: Spontaneous
  Country: JP (occurrence: JP)
  Receive Date: 20141208
  Receipt Date: 20160322
  Transmission Date: 20160525
  Serious: Yes (Death, Hospitalization)
  Sender: FDA-Public Use
  Company Number: JP-ACTELION-A-CH2014-99039

PATIENT
  Age: 41 Year
  Sex: Female

DRUGS (6)
  1. TRACLEER [Suspect]
     Active Substance: BOSENTAN
     Indication: PULMONARY ARTERIAL HYPERTENSION
     Route: 048
  2. VELETRI [Suspect]
     Active Substance: EPOPROSTENOL
     Dosage: 18.9 NG/KG, PER MIN
     Route: 042
     Dates: start: 20140303
  3. SILDENAFIL. [Concomitant]
     Active Substance: SILDENAFIL
  4. VELETRI [Suspect]
     Active Substance: EPOPROSTENOL
     Indication: PULMONARY ARTERIAL HYPERTENSION
     Dosage: 20 NG/KG, PER MIN
     Route: 042
     Dates: start: 20140415, end: 20141110
  5. VELETRI [Suspect]
     Active Substance: EPOPROSTENOL
     Dosage: 27 NG/KG, PER MIN
     Route: 042
     Dates: start: 20140312
  6. OXYGEN. [Concomitant]
     Active Substance: OXYGEN

REACTIONS (8)
  - Blood alkaline phosphatase increased [Fatal]
  - Pulmonary arterial hypertension [Fatal]
  - Therapeutic response decreased [Unknown]
  - Condition aggravated [Fatal]
  - Cardiac arrest [Fatal]
  - Diarrhoea [Recovered/Resolved]
  - White blood cell count increased [Not Recovered/Not Resolved]
  - Respiratory distress [Fatal]

NARRATIVE: CASE EVENT DATE: 20140312
